FAERS Safety Report 14374588 (Version 1)
Quarter: 2018Q1

REPORT INFORMATION
  Report Type: Spontaneous
  Country: US (occurrence: US)
  Receive Date: 20180111
  Receipt Date: 20180111
  Transmission Date: 20180509
  Serious: No
  Sender: FDA-Public Use
  Company Number: US-009507513-1801USA002212

PATIENT
  Sex: Female
  Weight: 52.15 kg

DRUGS (1)
  1. NEXPLANON [Suspect]
     Active Substance: ETONOGESTREL
     Indication: CONTRACEPTION
     Dosage: 3 YEAR IMPLANT
     Route: 059
     Dates: start: 20171212

REACTIONS (5)
  - Incision site pain [Unknown]
  - Oligomenorrhoea [Unknown]
  - Weight increased [Unknown]
  - Dysmenorrhoea [Unknown]
  - Headache [Unknown]

NARRATIVE: CASE EVENT DATE: 20171212
